FAERS Safety Report 11766655 (Version 1)
Quarter: 2015Q4

REPORT INFORMATION
  Report Type: Spontaneous
  Country: US (occurrence: None)
  Receive Date: 20151120
  Receipt Date: 20151120
  Transmission Date: 20160304
  Serious: Yes (Life-Threatening, Hospitalization)
  Sender: FDA-Public Use
  Company Number: None

PATIENT
  Age: 47 Year
  Sex: Male

DRUGS (11)
  1. CLOPIDOGREL [Concomitant]
     Active Substance: CLOPIDOGREL BISULFATE
  2. BUPROPION. [Concomitant]
     Active Substance: BUPROPION
  3. ROCURONIUM [Suspect]
     Active Substance: ROCURONIUM BROMIDE
     Indication: INDUCTION OF ANAESTHESIA
     Dosage: SINGLE DOSE
  4. ISOSORBIDE MONONITRATE. [Concomitant]
     Active Substance: ISOSORBIDE MONONITRATE
  5. CARVEDILOL. [Concomitant]
     Active Substance: CARVEDILOL
  6. GABAPENTIN. [Concomitant]
     Active Substance: GABAPENTIN
  7. LINSINOPRIL [Concomitant]
  8. LOVASTATIN. [Concomitant]
     Active Substance: LOVASTATIN
  9. TRAMADOL. [Concomitant]
     Active Substance: TRAMADOL
  10. ASPIRIN. [Concomitant]
     Active Substance: ASPIRIN
  11. BACLOFEN. [Concomitant]
     Active Substance: BACLOFEN

REACTIONS (6)
  - Cardiogenic shock [None]
  - Acute kidney injury [None]
  - Ischaemic hepatitis [None]
  - Cardiac arrest [None]
  - Arteriospasm coronary [None]
  - Electrocardiogram ST segment elevation [None]

NARRATIVE: CASE EVENT DATE: 20150821
